FAERS Safety Report 11582220 (Version 1)
Quarter: 2015Q4

REPORT INFORMATION
  Report Type: Spontaneous
  Country: US (occurrence: US)
  Receive Date: 20151001
  Receipt Date: 20151001
  Transmission Date: 20160304
  Serious: No
  Sender: FDA-Public Use
  Company Number: US-ROCHE-655871

PATIENT
  Age: 52 Year
  Sex: Female
  Weight: 57.6 kg

DRUGS (4)
  1. PEGASYS [Suspect]
     Active Substance: PEGINTERFERON ALFA-2A
     Indication: HEPATITIS C
     Dosage: WEEK 5 OF TREATMENT
     Route: 058
  2. COPEGUS [Suspect]
     Active Substance: RIBAVIRIN
     Route: 048
  3. PEGASYS [Suspect]
     Active Substance: PEGINTERFERON ALFA-2A
     Route: 058
  4. COPEGUS [Suspect]
     Active Substance: RIBAVIRIN
     Indication: HEPATITIS C
     Dosage: DIVIDED DOSES.?WEEK 5 OF TREATMENT
     Route: 048

REACTIONS (15)
  - Weight decreased [Unknown]
  - Depressed mood [Unknown]
  - Memory impairment [Unknown]
  - Headache [Recovered/Resolved]
  - Fatigue [Not Recovered/Not Resolved]
  - Fatigue [Unknown]
  - Confusional state [Unknown]
  - Fear [Unknown]
  - Eye pain [Unknown]
  - Abdominal pain upper [Unknown]
  - Pruritus [Unknown]
  - Full blood count decreased [Unknown]
  - Alopecia [Unknown]
  - Depression [Not Recovered/Not Resolved]
  - Nasal discomfort [Unknown]

NARRATIVE: CASE EVENT DATE: 20090901
